FAERS Safety Report 25922028 (Version 1)
Quarter: 2025Q4

REPORT INFORMATION
  Report Type: Report from Study
  Country: EU (occurrence: EU)
  Receive Date: 20251015
  Receipt Date: 20251015
  Transmission Date: 20260118
  Serious: Yes (Hospitalization)
  Sender: ACCORD
  Company Number: None

PATIENT
  Age: 77 Year
  Sex: Male
  Weight: 87.2 kg

DRUGS (2)
  1. DOCETAXEL [Suspect]
     Active Substance: DOCETAXEL
     Indication: Prostate cancer
     Dosage: 120MG
     Dates: start: 20241220, end: 20250314
  2. DAROLUTAMIDE [Suspect]
     Active Substance: DAROLUTAMIDE
     Indication: Prostate cancer
     Dosage: STRENGTH: 300 MG, 112 TABLETS, 600 MG/12H
     Dates: start: 20241220

REACTIONS (2)
  - Cardiac failure [Recovered/Resolved]
  - Lower respiratory tract inflammation [Recovered/Resolved]

NARRATIVE: CASE EVENT DATE: 20250327
